FAERS Safety Report 10077433 (Version 2)
Quarter: 2014Q2

REPORT INFORMATION
  Report Type: Spontaneous
  Country: US (occurrence: US)
  Receive Date: 20140414
  Receipt Date: 20140414
  Transmission Date: 20141212
  Serious: No
  Sender: FDA-Public Use
  Company Number: US-BANPHARM-20131515

PATIENT
  Age: 85 Year
  Sex: Female
  Weight: 58.51 kg

DRUGS (2)
  1. ALEVE LIQUID GELS 220 MG [Suspect]
     Indication: ARTHRITIS
     Dosage: 1 DF, QD,
     Route: 048
  2. ALEVE GEL CAPS [Suspect]
     Dosage: 1 DF, BID,

REACTIONS (3)
  - Nervousness [Unknown]
  - Drug ineffective [Unknown]
  - Incorrect drug administration duration [Unknown]
